FAERS Safety Report 8161891-4 (Version None)
Quarter: 2012Q1

REPORT INFORMATION
  Report Type: 
  Country: None (occurrence: None)
  Receive Date: 20120224
  Receipt Date: 20111114
  Transmission Date: 20120608
  Serious: No
  Sender: FDA-Public Use
  Company Number: US-BRISTOL-MYERS SQUIBB COMPANY-16217978

PATIENT
  Age: 62 Year
  Sex: Female

DRUGS (4)
  1. SAVELLA [Suspect]
     Indication: FIBROMYALGIA
     Dates: end: 20110622
  2. VICTOZA [Suspect]
     Dosage: INITIALLY GIVEN 0.6MG,AFTER 1 WEEK INCREASED TO 1.2MG
     Dates: start: 20110622, end: 20110801
  3. METFORMIN HCL [Suspect]
     Indication: TYPE 2 DIABETES MELLITUS
     Dosage: 1DF:500 UNITS NOS METFORMIN ER
     Dates: end: 20110622
  4. INSULIN [Suspect]
     Indication: TYPE 2 DIABETES MELLITUS
     Dosage: BASAL BOLUS INSULIN

REACTIONS (1)
  - GLOMERULAR FILTRATION RATE DECREASED [None]
